FAERS Safety Report 24084777 (Version 1)
Quarter: 2024Q3

REPORT INFORMATION
  Report Type: Spontaneous
  Country: US (occurrence: US)
  Receive Date: 20240712
  Receipt Date: 20240712
  Transmission Date: 20241017
  Serious: No
  Sender: BRISTOL MYERS SQUIBB
  Company Number: US-BRISTOL-MYERS SQUIBB COMPANY-2024-110578

PATIENT
  Age: 77 Year
  Sex: Female

DRUGS (1)
  1. ONUREG [Suspect]
     Active Substance: AZACITIDINE
     Indication: Product used for unknown indication
     Dosage: FREQ: TAKE 1 TABLET BY MOUTH ONCE DAILY ON DAYS 1-14, THEN REST FOR 14 DAYS. (28 DAY CYCLE)
     Route: 048

REACTIONS (1)
  - Laryngitis [Recovering/Resolving]
